FAERS Safety Report 7495433-3 (Version None)
Quarter: 2011Q2

REPORT INFORMATION
  Report Type: 
  Country: None (occurrence: None)
  Receive Date: 20110523
  Receipt Date: 20110418
  Transmission Date: 20111010
  Serious: No
  Sender: FDA-Public Use
  Company Number: US-TYCO HEALTHCARE/MALLINCKRODT-T201100799

PATIENT
  Sex: Female

DRUGS (2)
  1. FENTANYL-100 [Suspect]
     Dosage: 50 UG/HR Q 72 HRS
     Route: 062
     Dates: start: 20110415
  2. FENTANYL-100 [Suspect]
     Indication: PAIN
     Dosage: 100 UG/HR, Q 72 HRS
     Route: 062
     Dates: start: 20110415

REACTIONS (1)
  - DRUG INEFFECTIVE [None]
